FAERS Safety Report 6594050-7 (Version None)
Quarter: 2010Q1

REPORT INFORMATION
  Report Type: 
  Country: None (occurrence: None)
  Receive Date: 20100218
  Receipt Date: 20100218
  Transmission Date: 20100710
  Serious: Yes (Life-Threatening)
  Sender: FDA-Public Use
  Company Number: None

PATIENT
  Age: 69 Year
  Sex: Male

DRUGS (2)
  1. VANCOMYCIN [Suspect]
     Indication: CARDIOVASCULAR DISORDER
     Dosage: 1 GM OTHER IV
     Route: 042
     Dates: start: 20090901, end: 20090901
  2. VANCOMYCIN [Suspect]
     Indication: SURGERY
     Dosage: 1 GM OTHER IV
     Route: 042
     Dates: start: 20090901, end: 20090901

REACTIONS (3)
  - HYPOTENSION [None]
  - PRURITUS [None]
  - URTICARIA [None]
